FAERS Safety Report 6692238-8 (Version None)
Quarter: 2010Q2

REPORT INFORMATION
  Report Type: 
  Country: None (occurrence: None)
  Receive Date: 20100419
  Receipt Date: 20100407
  Transmission Date: 20101027
  Serious: Yes (Life-Threatening)
  Sender: FDA-Public Use
  Company Number: 1000013191

PATIENT
  Sex: Female

DRUGS (1)
  1. CITALOPRAM HYDROBROMIDE [Suspect]
     Dosage: 40 MG, ORAL
     Route: 048
     Dates: end: 20100401

REACTIONS (4)
  - CRYING [None]
  - FEELING OF DESPAIR [None]
  - HYPERSOMNIA [None]
  - SUICIDAL IDEATION [None]
